FAERS Safety Report 5517449-6 (Version None)
Quarter: 2007Q4

REPORT INFORMATION
  Report Type: 
  Country: None (occurrence: None)
  Receive Date: 20071114
  Receipt Date: 20071105
  Transmission Date: 20080405
  Serious: Yes (Hospitalization)
  Sender: FDA-Public Use
  Company Number: PHEH2007US14370

PATIENT
  Age: 55 Year
  Sex: Female
  Weight: 56.689 kg

DRUGS (1)
  1. RECLAST [Suspect]
     Dosage: YEARLY
     Route: 042
     Dates: start: 20071024

REACTIONS (3)
  - CHEST DISCOMFORT [None]
  - INFLUENZA LIKE ILLNESS [None]
  - PLEURITIC PAIN [None]
